FAERS Safety Report 23064971 (Version 1)
Quarter: 2023Q4

REPORT INFORMATION
  Report Type: Spontaneous
  Country: US (occurrence: None)
  Receive Date: 20231013
  Receipt Date: 20231013
  Transmission Date: 20240109
  Serious: Yes (Hospitalization)
  Sender: FDA-Public Use
  Company Number: None

PATIENT
  Age: 57 Year
  Sex: Male

DRUGS (3)
  1. NIRMATRELVIR\RITONAVIR [Suspect]
     Active Substance: NIRMATRELVIR\RITONAVIR
     Dates: start: 20221225, end: 20221229
  2. HYDROXYZINE [Suspect]
     Active Substance: HYDROXYZINE HYDROCHLORIDE
  3. ARIPIPRAZOLE [Suspect]
     Active Substance: ARIPIPRAZOLE

REACTIONS (8)
  - Dehydration [None]
  - Loss of consciousness [None]
  - SARS-CoV-2 test positive [None]
  - Dry mouth [None]
  - Dizziness [None]
  - Hypokalaemia [None]
  - Dyspnoea [None]
  - Anxiety [None]

NARRATIVE: CASE EVENT DATE: 20221229
